FAERS Safety Report 14156155 (Version 2)
Quarter: 2017Q4

REPORT INFORMATION
  Report Type: Report from Study
  Country: BR (occurrence: BR)
  Receive Date: 20171103
  Receipt Date: 20171116
  Transmission Date: 20180321
  Serious: Yes (Hospitalization, Other)
  Sender: FDA-Public Use
  Company Number: PHHY2017BR160950

PATIENT
  Age: 75 Year
  Sex: Male
  Weight: 80 kg

DRUGS (3)
  1. DIOVAN AMLO FIX [Suspect]
     Active Substance: AMLODIPINE\VALSARTAN
     Dosage: 0.5 DF (AMLODIPINE 5 MG, VALSARTAN 160 MG), QD
     Route: 048
  2. DIOVAN AMLO FIX [Suspect]
     Active Substance: AMLODIPINE\VALSARTAN
     Dosage: 1 DF (AMLODIPINE 5 MG, VALSARTAN 160 MG), QD
     Route: 048
  3. DIOVAN AMLO FIX [Suspect]
     Active Substance: AMLODIPINE\VALSARTAN
     Indication: HYPERTENSION
     Dosage: 1 DF (AMLODIPINE 5 MG, VALSARTAN 160 MG), QD
     Route: 048

REACTIONS (16)
  - Myocardial infarction [Recovered/Resolved]
  - Vein disorder [Unknown]
  - Nervousness [Unknown]
  - Wrong technique in product usage process [Unknown]
  - Asthenia [Recovered/Resolved]
  - Hypoacusis [Unknown]
  - Fall [Unknown]
  - Prostate cancer [Unknown]
  - Dizziness [Unknown]
  - Gait disturbance [Unknown]
  - Malaise [Unknown]
  - Blood pressure decreased [Recovered/Resolved]
  - Drug prescribing error [Unknown]
  - Myocardial infarction [Recovered/Resolved]
  - Pain in extremity [Unknown]
  - Memory impairment [Unknown]

NARRATIVE: CASE EVENT DATE: 20160912
